FAERS Safety Report 7358714-X (Version None)
Quarter: 2011Q1

REPORT INFORMATION
  Report Type: 
  Country: None (occurrence: None)
  Receive Date: 20110307
  Receipt Date: 20110221
  Transmission Date: 20110831
  Serious: Yes (Hospitalization)
  Sender: FDA-Public Use
  Company Number: S05-FRA-02274-01

PATIENT
  Age: 79 Year
  Sex: Male
  Weight: 59 kg

DRUGS (2)
  1. MEMANTINE [Suspect]
     Indication: DEMENTIA ALZHEIMER'S TYPE
     Dosage: 20 MG (20 MG, 1 IN 1 D), ORAL
     Route: 048
     Dates: start: 20041130, end: 20050521
  2. PARIET (RABEPRAZOLE SODIUM) (TABLETS) [Suspect]
     Indication: OESOPHAGITIS
     Dosage: 10 MG (10 MG, 1 IN 1 D)
     Dates: start: 20040201, end: 20050531

REACTIONS (10)
  - CONFUSIONAL STATE [None]
  - PERSECUTORY DELUSION [None]
  - AGGRESSION [None]
  - HALLUCINATION [None]
  - DEMENTIA ALZHEIMER'S TYPE [None]
  - PERSONALITY CHANGE [None]
  - MENTAL DISORDER [None]
  - CONDITION AGGRAVATED [None]
  - PSYCHOTIC DISORDER [None]
  - PHYSICAL ASSAULT [None]
